FAERS Safety Report 5811198-2 (Version None)
Quarter: 2008Q3

REPORT INFORMATION
  Report Type: 
  Country: None (occurrence: None)
  Receive Date: 20080716
  Receipt Date: 20080709
  Transmission Date: 20090109
  Serious: Yes (Other)
  Sender: FDA-Public Use
  Company Number: US-BAYER-200827514NA

PATIENT
  Sex: Female

DRUGS (2)
  1. CLIMARA [Suspect]
     Indication: HORMONE THERAPY
     Route: 061
     Dates: start: 20020701
  2. ESTRACE [Suspect]
     Indication: HORMONE THERAPY
     Dates: start: 20020701

REACTIONS (1)
  - BREAST CANCER [None]
